FAERS Safety Report 13228192 (Version 1)
Quarter: 2017Q1

REPORT INFORMATION
  Report Type: Spontaneous
  Country: US (occurrence: US)
  Receive Date: 20170213
  Receipt Date: 20170213
  Transmission Date: 20170428
  Serious: No
  Sender: FDA-Public Use
  Company Number: US-ROCHE-1826549

PATIENT
  Sex: Female
  Weight: 95 kg

DRUGS (1)
  1. XOLAIR [Suspect]
     Active Substance: OMALIZUMAB
     Indication: ASTHMA
     Route: 058

REACTIONS (4)
  - Circumstance or information capable of leading to medication error [Unknown]
  - Arthralgia [Recovering/Resolving]
  - Myalgia [Unknown]
  - Ill-defined disorder [Unknown]
